FAERS Safety Report 7394940-1 (Version None)
Quarter: 2011Q2

REPORT INFORMATION
  Report Type: 
  Country: None (occurrence: None)
  Receive Date: 20110405
  Receipt Date: 20110401
  Transmission Date: 20111010
  Serious: No
  Sender: FDA-Public Use
  Company Number: US-PFIZER INC-2011073359

PATIENT
  Sex: Male
  Weight: 142.85 kg

DRUGS (2)
  1. SOMAVERT [Suspect]
     Dosage: 15 OR 16 MG DAILY
     Dates: start: 20100401
  2. COREG [Concomitant]
     Indication: BLOOD PRESSURE ABNORMAL
     Dosage: 15 MG, 1X/DAY
     Route: 048

REACTIONS (1)
  - INJECTION SITE DISCOLOURATION [None]
